FAERS Safety Report 4277566-8 (Version None)
Quarter: 2004Q1

REPORT INFORMATION
  Report Type: 
  Country: None (occurrence: None)
  Receive Date: 20040121
  Receipt Date: 20040121
  Transmission Date: 20041129
  Serious: Yes (Life-Threatening, Hospitalization)
  Sender: FDA-Public Use
  Company Number: None

PATIENT
  Sex: Female
  Weight: 83 kg

DRUGS (7)
  1. DROTRECOGIN [Suspect]
     Indication: SEPSIS
     Dosage: 24 MCG/KG/HR
     Dates: start: 20031128, end: 20031201
  2. AZITHROMYCIN [Concomitant]
  3. ZOSYN [Concomitant]
  4. VANCOMYCIN [Concomitant]
  5. FENTANYL [Concomitant]
  6. VERSED [Concomitant]
  7. VITAMIN K TAB [Concomitant]

REACTIONS (3)
  - DEPRESSED LEVEL OF CONSCIOUSNESS [None]
  - HAEMORRHAGE INTRACRANIAL [None]
  - THROMBOCYTOPENIA [None]
